FAERS Safety Report 7910475-9 (Version None)
Quarter: 2011Q4

REPORT INFORMATION
  Report Type: 
  Country: None (occurrence: None)
  Receive Date: 20111111
  Receipt Date: 20111104
  Transmission Date: 20120403
  Serious: Yes (Other)
  Sender: FDA-Public Use
  Company Number: PHHY2011SE097390

PATIENT
  Age: 30 Year
  Sex: Male

DRUGS (6)
  1. MOVIPREP [Concomitant]
     Route: 048
  2. THERALEN [Concomitant]
     Dosage: 2 ML, UNK
     Route: 048
  3. NOZINAN [Concomitant]
     Dosage: 25 MG, BID
  4. TEGRETOL [Suspect]
     Dosage: 200 MG, QID
  5. ANAFRANIL [Concomitant]
     Dosage: 75 MG, BID
  6. NITRAZEPAM [Concomitant]
     Dosage: 5 MG, PER DAY

REACTIONS (6)
  - DYSURIA [None]
  - URINARY RETENTION [None]
  - URINARY TRACT INFECTION [None]
  - FATIGUE [None]
  - URETERIC STENOSIS [None]
  - WEIGHT INCREASED [None]
